FAERS Safety Report 4806699-X (Version None)
Quarter: 2005Q4

REPORT INFORMATION
  Report Type: 
  Country: None (occurrence: None)
  Receive Date: 20051019
  Receipt Date: 20051003
  Transmission Date: 20060501
  Serious: Yes (Hospitalization)
  Sender: FDA-Public Use
  Company Number: EWC050945934

PATIENT
  Age: 65 Year
  Sex: Male

DRUGS (3)
  1. FORTEO [Suspect]
     Indication: OSTEOPOROSIS
     Dates: start: 20040616, end: 20050902
  2. PAMOL (PARACETAMOL) [Concomitant]
  3. UNIKALK [Concomitant]

REACTIONS (1)
  - PROSTATE CANCER [None]
